FAERS Safety Report 19433173 (Version 1)
Quarter: 2021Q2

REPORT INFORMATION
  Report Type: Spontaneous
  Country: FR (occurrence: FR)
  Receive Date: 20210617
  Receipt Date: 20210617
  Transmission Date: 20210717
  Serious: Yes (Other)
  Sender: FDA-Public Use
  Company Number: FR-PFIZER INC-2021661480

PATIENT
  Age: 22 Year
  Sex: Male

DRUGS (3)
  1. SERTRALINE HCL [Suspect]
     Active Substance: SERTRALINE HYDROCHLORIDE
     Dosage: 150 MG, 1X/DAY
     Route: 048
  2. AMPHETAMINE [Suspect]
     Active Substance: AMPHETAMINE
     Dosage: UP TO 1 DOSE EVERY 30 MINUTES, 3 TO 4 G DAILY IN SESSION OF 3 DAYS
     Route: 048
  3. AMPHETAMINE [Suspect]
     Active Substance: AMPHETAMINE
     Dosage: UP TO 1 DOSE EVERY 30 MINUTES, 3 TO 4 G DAILY IN SESSION OF 3 DAYS
     Route: 045

REACTIONS (1)
  - Substance use disorder [Not Recovered/Not Resolved]
